FAERS Safety Report 20681151 (Version 4)
Quarter: 2022Q4

REPORT INFORMATION
  Report Type: Report from Study
  Country: US (occurrence: US)
  Receive Date: 20220406
  Receipt Date: 20221207
  Transmission Date: 20230112
  Serious: Yes (Hospitalization)
  Sender: FDA-Public Use
  Company Number: US-BoehringerIngelheim-2020-BI-061279

PATIENT
  Age: 44 Year
  Sex: Female

DRUGS (2)
  1. OFEV [Suspect]
     Active Substance: NINTEDANIB
     Indication: Idiopathic pulmonary fibrosis
     Dosage: LOT NO-103911
     Route: 048
     Dates: start: 20201008
  2. OFEV [Suspect]
     Active Substance: NINTEDANIB
     Indication: Scleroderma

REACTIONS (11)
  - Vomiting [Unknown]
  - Dehydration [Recovered/Resolved]
  - Dyspnoea [Recovered/Resolved]
  - Asthenia [Unknown]
  - Decreased appetite [Unknown]
  - Nasopharyngitis [Unknown]
  - COVID-19 [Unknown]
  - Diarrhoea [Recovering/Resolving]
  - Throat irritation [Unknown]
  - Fungal infection [Unknown]
  - Nausea [Unknown]

NARRATIVE: CASE EVENT DATE: 20220201
